FAERS Safety Report 4813729-8 (Version None)
Quarter: 2005Q4

REPORT INFORMATION
  Report Type: 
  Country: None (occurrence: None)
  Receive Date: 20051026
  Receipt Date: 20051005
  Transmission Date: 20060501
  Serious: Yes (Other)
  Sender: FDA-Public Use
  Company Number: USA0510110308

PATIENT
  Sex: Female

DRUGS (2)
  1. FORTEO [Suspect]
     Indication: FRACTURE
  2. FORTEO [Suspect]
     Indication: PROPHYLAXIS

REACTIONS (1)
  - OVERDOSE [None]
